FAERS Safety Report 10502351 (Version 2)
Quarter: 2014Q4

REPORT INFORMATION
  Report Type: Report from Study
  Country: RU (occurrence: RU)
  Receive Date: 20141007
  Receipt Date: 20141015
  Transmission Date: 20150528
  Serious: Yes (Hospitalization)
  Sender: FDA-Public Use
  Company Number: RU-TEVA-512377ISR

PATIENT
  Age: 20 Year
  Sex: Female
  Weight: 74 kg

DRUGS (2)
  1. FERROUS SULFATE [Concomitant]
     Active Substance: FERROUS SULFATE\FERROUS SULFATE, DRIED
     Indication: ANAEMIA
     Dosage: 640 MILLIGRAM DAILY;
     Route: 048
     Dates: start: 20140725
  2. MODELL LIBERA [Suspect]
     Active Substance: ETHINYL ESTRADIOL\LEVONORGESTREL
     Indication: CONTRACEPTION
     Dosage: 1 TABLET DAILY;
     Route: 048
     Dates: start: 20140815, end: 20140906

REACTIONS (1)
  - Ovulation pain [Recovered/Resolved]

NARRATIVE: CASE EVENT DATE: 20140907
